FAERS Safety Report 24648318 (Version 1)
Quarter: 2024Q4

REPORT INFORMATION
  Report Type: Spontaneous
  Country: US (occurrence: None)
  Receive Date: 20241121
  Receipt Date: 20241121
  Transmission Date: 20250115
  Serious: No
  Sender: Public
  Company Number: None

PATIENT
  Sex: 0

DRUGS (1)
  1. MIRABEGRON [Suspect]
     Active Substance: MIRABEGRON

REACTIONS (1)
  - Constipation [None]

NARRATIVE: CASE EVENT DATE: 20241120
